FAERS Safety Report 5121621-7 (Version None)
Quarter: 2006Q4

REPORT INFORMATION
  Report Type: 
  Country: None (occurrence: None)
  Receive Date: 20061006
  Receipt Date: 20060926
  Transmission Date: 20070319
  Serious: Yes (Death, Hospitalization)
  Sender: FDA-Public Use
  Company Number: GB-AVENTIS-200620161GDDC

PATIENT
  Age: 43 Year
  Sex: Female
  Weight: 45 kg

DRUGS (15)
  1. RIFINAH [Suspect]
     Route: 048
  2. EFAVIRENZ [Suspect]
     Indication: HIV INFECTION
     Route: 048
     Dates: start: 20050506, end: 20050603
  3. EFAVIRENZ [Suspect]
     Dosage: DOSE: UNK
     Dates: start: 20050706, end: 20050830
  4. ETHAMBUTOL HCL [Suspect]
     Dosage: DOSE: UNK
     Route: 048
     Dates: start: 20050404, end: 20050830
  5. CIPROFLOXACIN [Concomitant]
     Dosage: DOSE: UNK
  6. CLEXANE [Concomitant]
     Dosage: DOSE: UNK
     Route: 048
     Dates: start: 20050502, end: 20050823
  7. CO-TRIMOXAZOLE [Concomitant]
     Indication: PROPHYLAXIS
     Route: 048
     Dates: start: 20050401, end: 20050801
  8. GENTAMICIN [Concomitant]
     Dosage: DOSE: UNK
  9. LAMIVUDINE [Concomitant]
     Route: 048
     Dates: start: 20050511, end: 20050830
  10. MEROPENEM [Concomitant]
     Dosage: DOSE: UNK
     Dates: start: 20050822, end: 20050828
  11. OMEPRAZOLE [Concomitant]
     Dosage: DOSE: UNK
     Route: 048
     Dates: start: 20050811, end: 20050819
  12. PHENYTOIN [Concomitant]
     Dosage: DOSE: UNK
     Route: 048
     Dates: start: 20050802, end: 20050822
  13. PREDNISOLONE [Concomitant]
     Dosage: DOSE: UNK
     Route: 048
     Dates: start: 20050627, end: 20050830
  14. PYRIDOXINE HCL [Concomitant]
     Dosage: DOSE: UNK
     Route: 048
     Dates: start: 20050404, end: 20050830
  15. TENOFOVIR [Concomitant]
     Route: 048
     Dates: start: 20050624, end: 20050830

REACTIONS (5)
  - IMMUNE RECONSTITUTION SYNDROME [None]
  - LIVER FUNCTION TEST ABNORMAL [None]
  - RASH MACULO-PAPULAR [None]
  - TOXIC EPIDERMAL NECROLYSIS [None]
  - TUBERCULOSIS [None]
